FAERS Safety Report 6200228-4 (Version None)
Quarter: 2009Q2

REPORT INFORMATION
  Report Type: 
  Country: None (occurrence: None)
  Receive Date: 20090522
  Receipt Date: 20090515
  Transmission Date: 20091009
  Serious: Yes (Hospitalization)
  Sender: FDA-Public Use
  Company Number: FR-JNJFOC-20090503420

PATIENT
  Age: 79 Year
  Sex: Female

DRUGS (8)
  1. REMINYL LP [Suspect]
     Indication: DRUG USE FOR UNKNOWN INDICATION
     Route: 048
  2. ZOLPIDEM TARTRATE [Concomitant]
     Route: 065
  3. FORADIL [Concomitant]
     Route: 065
  4. DAFALGAN [Concomitant]
     Route: 065
  5. LASIX [Concomitant]
     Route: 065
  6. ALPRAZOLAM [Concomitant]
     Route: 065
  7. DEROXAT [Concomitant]
     Route: 065
  8. DEPAKOTE [Concomitant]
     Route: 065

REACTIONS (4)
  - GENERAL PHYSICAL CONDITION ABNORMAL [None]
  - SINUS BRADYCARDIA [None]
  - SOMNOLENCE [None]
  - SUPRAVENTRICULAR EXTRASYSTOLES [None]
